FAERS Safety Report 15273212 (Version 1)
Quarter: 2018Q3

REPORT INFORMATION
  Report Type: Spontaneous
  Country: CN (occurrence: CN)
  Receive Date: 20180813
  Receipt Date: 20180813
  Transmission Date: 20181010
  Serious: Yes (Other)
  Sender: FDA-Public Use
  Company Number: CN-GEHC-2018CSU003076

PATIENT

DRUGS (1)
  1. VISIPAQUE [Suspect]
     Active Substance: IODIXANOL
     Indication: CHEST DISCOMFORT
     Dosage: 100 ML, SINGLE
     Route: 013
     Dates: start: 20170114, end: 20170114

REACTIONS (6)
  - Oedema [Recovering/Resolving]
  - Heart rate decreased [Recovered/Resolved]
  - Blood pressure decreased [Recovering/Resolving]
  - Flushing [Recovered/Resolved]
  - Chest discomfort [Recovering/Resolving]
  - Dyspnoea [Recovering/Resolving]

NARRATIVE: CASE EVENT DATE: 20170114
